FAERS Safety Report 9008007 (Version 4)
Quarter: 2013Q1

REPORT INFORMATION
  Report Type: Spontaneous
  Country: CA (occurrence: CA)
  Receive Date: 20130110
  Receipt Date: 20130220
  Transmission Date: 20140127
  Serious: Yes (Other)
  Sender: FDA-Public Use
  Company Number: CA-AMGEN-CANSP2013001566

PATIENT
  Age: 66 Year
  Sex: Female

DRUGS (3)
  1. ENBREL [Suspect]
     Indication: RHEUMATOID ARTHRITIS
     Dosage: UNK
     Dates: start: 20121129, end: 20130107
  2. ATACAND [Concomitant]
     Dosage: UNK
  3. LEFLUNOMIDE [Concomitant]
     Dosage: UNK

REACTIONS (13)
  - Palpitations [Recovered/Resolved]
  - Headache [Recovered/Resolved]
  - Paraesthesia oral [Recovered/Resolved]
  - Hypoacusis [Unknown]
  - Dizziness [Recovered/Resolved]
  - Hypoaesthesia oral [Recovered/Resolved]
  - Muscle spasms [Recovered/Resolved]
  - Asthenia [Recovered/Resolved]
  - Diarrhoea [Recovered/Resolved]
  - Blood pressure increased [Recovered/Resolved]
  - Bone pain [Recovered/Resolved]
  - Injection site pain [Unknown]
  - Influenza [Recovered/Resolved]
